FAERS Safety Report 20738903 (Version 3)
Quarter: 2023Q4

REPORT INFORMATION
  Report Type: Report from Study
  Country: NL (occurrence: NL)
  Receive Date: 20220422
  Receipt Date: 20231102
  Transmission Date: 20240110
  Serious: Yes (Hospitalization, Other)
  Sender: FDA-Public Use
  Company Number: NL-002147023-NVSC2022NL070752

PATIENT
  Age: 70 Year
  Sex: Female

DRUGS (3)
  1. RIVAROXABAN [Suspect]
     Active Substance: RIVAROXABAN
     Indication: Pulmonary embolism
     Dosage: 20 MG
     Route: 048
     Dates: start: 20220323, end: 20220323
  2. FENTANYL [Suspect]
     Active Substance: FENTANYL\FENTANYL CITRATE
     Indication: Pain
     Dosage: 75 UG, UNK
     Route: 065
     Dates: end: 20220323
  3. CAPMATINIB [Suspect]
     Active Substance: CAPMATINIB
     Indication: Non-small cell lung cancer stage IV
     Dosage: 800 MG, UNK
     Route: 048
     Dates: start: 20220121, end: 20220325

REACTIONS (6)
  - Pulmonary embolism [Unknown]
  - Nausea [Unknown]
  - Chest pain [Unknown]
  - Non-small cell lung cancer [Unknown]
  - Malignant neoplasm progression [Unknown]
  - COVID-19 [Unknown]

NARRATIVE: CASE EVENT DATE: 20220323
